FAERS Safety Report 11039344 (Version 3)
Quarter: 2015Q2

REPORT INFORMATION
  Report Type: Report from Study
  Country: CO (occurrence: CO)
  Receive Date: 20150416
  Receipt Date: 20150522
  Transmission Date: 20150821
  Serious: Yes (Hospitalization, Other)
  Sender: FDA-Public Use
  Company Number: CO-ABBVIE-15K-036-1376535-00

PATIENT
  Age: 43 Year
  Sex: Female
  Weight: 44 kg

DRUGS (3)
  1. ACETAMINOPHEN. [Concomitant]
     Active Substance: ACETAMINOPHEN
     Indication: PRODUCT USED FOR UNKNOWN INDICATION
  2. HUMIRA [Suspect]
     Active Substance: ADALIMUMAB
     Indication: ANKYLOSING SPONDYLITIS
     Route: 058
     Dates: start: 20120829, end: 20150316
  3. RIVAROXABAN [Concomitant]
     Active Substance: RIVAROXABAN
     Indication: PRODUCT USED FOR UNKNOWN INDICATION

REACTIONS (8)
  - White matter lesion [Recovering/Resolving]
  - Cachexia [Recovering/Resolving]
  - Lymphadenopathy [Recovering/Resolving]
  - Pulmonary mass [Recovering/Resolving]
  - Antibody test positive [Recovering/Resolving]
  - Anaemia [Recovering/Resolving]
  - Lupus-like syndrome [Recovering/Resolving]
  - Dyspepsia [Not Recovered/Not Resolved]

NARRATIVE: CASE EVENT DATE: 20150323
